FAERS Safety Report 20922255 (Version 1)
Quarter: 2022Q2

REPORT INFORMATION
  Report Type: Spontaneous
  Country: IR (occurrence: IR)
  Receive Date: 20220607
  Receipt Date: 20220607
  Transmission Date: 20220721
  Serious: Yes (Hospitalization, Other)
  Sender: FDA-Public Use
  Company Number: IR-SUN PHARMACEUTICAL INDUSTRIES LTD-2022RR-339715

PATIENT
  Age: 36 Year
  Sex: Female

DRUGS (1)
  1. METFORMIN [Suspect]
     Active Substance: METFORMIN HYDROCHLORIDE
     Indication: Product used for unknown indication
     Dosage: 20-30 PILLS, 500 MILLIGRAM, DAILY
     Route: 065

REACTIONS (8)
  - Toxicity to various agents [Unknown]
  - Drug abuse [Unknown]
  - Cardiogenic shock [Unknown]
  - Hyponatraemia [Unknown]
  - Acute kidney injury [Unknown]
  - Neuropathy peripheral [Unknown]
  - Anaemia megaloblastic [Unknown]
  - Pancytopenia [Unknown]
